FAERS Safety Report 10093051 (Version 1)
Quarter: 2014Q2

REPORT INFORMATION
  Report Type: Spontaneous
  Country: US (occurrence: US)
  Receive Date: 20140421
  Receipt Date: 20140421
  Transmission Date: 20141212
  Serious: No
  Sender: FDA-Public Use
  Company Number: US-SANOFI-AVENTIS-2013SA092676

PATIENT
  Age: 68 Year
  Sex: Female

DRUGS (3)
  1. ALLEGRA [Suspect]
     Indication: MULTIPLE ALLERGIES
     Dosage: TAKEN FROM-4-5 MONTHS AGO
     Route: 048
  2. ALLEGRA [Suspect]
     Indication: NASAL CONGESTION
     Dosage: TAKEN FROM-4-5 MONTHS AGO
     Route: 048
  3. VITAMINS [Concomitant]

REACTIONS (4)
  - Swelling [Not Recovered/Not Resolved]
  - Nasal disorder [Not Recovered/Not Resolved]
  - Blister [Not Recovered/Not Resolved]
  - Skin discolouration [Not Recovered/Not Resolved]
